FAERS Safety Report 8928869 (Version 1)
Quarter: 2012Q4

REPORT INFORMATION
  Report Type: 
  Country: AT (occurrence: AT)
  Receive Date: 20121128
  Receipt Date: 20121128
  Transmission Date: 20130627
  Serious: Yes (Hospitalization, Other)
  Sender: FDA-Public Use
  Company Number: AT-AMGEN-AUTSP2012076006

PATIENT
  Age: 70 Year
  Sex: Female

DRUGS (3)
  1. ENBREL [Suspect]
     Indication: RHEUMATOID ARTHRITIS
     Dosage: 25 mg, 2x/week
     Route: 058
     Dates: start: 200307, end: 201201
  2. METHOTREXATE SODIUM [Suspect]
     Indication: RHEUMATOID ARTHRITIS
     Dosage: 5 mg, UNK
     Route: 048
     Dates: start: 200206, end: 201007
  3. PREDNISOLON                        /00016201/ [Concomitant]
     Indication: RHEUMATOID ARTHRITIS
     Dosage: 5 mg, 1x/day
     Route: 048
     Dates: start: 2001

REACTIONS (1)
  - Pancreatitis [Recovered/Resolved]
